FAERS Safety Report 5576299-5 (Version None)
Quarter: 2007Q4

REPORT INFORMATION
  Report Type: 
  Country: None (occurrence: None)
  Receive Date: 20071228
  Receipt Date: 20071214
  Transmission Date: 20080405
  Serious: Yes (Other)
  Sender: FDA-Public Use
  Company Number: JP-BAYER-200711075BYL

PATIENT
  Age: 62 Year
  Sex: Male

DRUGS (1)
  1. ASPIRIN [Suspect]
     Route: 048

REACTIONS (1)
  - LARGE INTESTINAL HAEMORRHAGE [None]
